FAERS Safety Report 14775772 (Version 2)
Quarter: 2018Q2

REPORT INFORMATION
  Report Type: Spontaneous
  Country: US (occurrence: US)
  Receive Date: 20180418
  Receipt Date: 20180521
  Transmission Date: 20180711
  Serious: No
  Sender: FDA-Public Use
  Company Number: US-MYLANLABS-2018M1023760

PATIENT
  Age: 83 Year
  Sex: Female
  Weight: 74.83 kg

DRUGS (1)
  1. AMLODIPINE [Suspect]
     Active Substance: AMLODIPINE BESYLATE
     Indication: BLOOD PRESSURE INCREASED
     Dosage: 5 MG, QD
     Dates: start: 201508

REACTIONS (5)
  - Negative thoughts [Recovered/Resolved]
  - Hypoaesthesia [Unknown]
  - Breast pain [Recovering/Resolving]
  - Pain [Recovering/Resolving]
  - Sneezing [Recovered/Resolved]

NARRATIVE: CASE EVENT DATE: 20180122
